FAERS Safety Report 5196166-9 (Version None)
Quarter: 2006Q4

REPORT INFORMATION
  Report Type: 
  Country: None (occurrence: None)
  Receive Date: 20061221
  Receipt Date: 20061205
  Transmission Date: 20070319
  Serious: Yes (Hospitalization)
  Sender: FDA-Public Use
  Company Number: 150764ISR

PATIENT
  Sex: Female

DRUGS (2)
  1. PACLITAXEL [Suspect]
     Indication: OVARIAN CANCER METASTATIC
     Dosage: 6MG/ML
  2. CISPLATIN [Concomitant]

REACTIONS (2)
  - MENTAL DISORDER [None]
  - NERVOUS SYSTEM DISORDER [None]
